FAERS Safety Report 22385277 (Version 1)
Quarter: 2023Q2

REPORT INFORMATION
  Report Type: Report from Study
  Country: CN (occurrence: CN)
  Receive Date: 20230530
  Receipt Date: 20230530
  Transmission Date: 20230721
  Serious: Yes (Hospitalization)
  Sender: FDA-Public Use
  Company Number: CN-002147023-NVSC2023CN074959

PATIENT
  Age: 57 Year
  Sex: Female
  Weight: 47 kg

DRUGS (3)
  1. DABRAFENIB [Suspect]
     Active Substance: DABRAFENIB
     Indication: Non-small cell lung cancer metastatic
     Dosage: 150 MG, BID
     Route: 048
     Dates: start: 20230305, end: 20230331
  2. TRAMETINIB [Suspect]
     Active Substance: TRAMETINIB
     Indication: Non-small cell lung cancer metastatic
     Dosage: 2 MG, Q24H
     Route: 048
     Dates: start: 20230305, end: 20230331
  3. VITAMIN B1 [Concomitant]
     Active Substance: THIAMINE HYDROCHLORIDE
     Indication: Peroneal nerve injury
     Dosage: UNK
     Route: 065
     Dates: start: 20230331, end: 20230403

REACTIONS (1)
  - Type 2 diabetes mellitus [Recovered/Resolved]

NARRATIVE: CASE EVENT DATE: 20230331
